FAERS Safety Report 13473359 (Version 1)
Quarter: 2017Q2

REPORT INFORMATION
  Report Type: Spontaneous
  Country: US (occurrence: US)
  Receive Date: 20170424
  Receipt Date: 20170424
  Transmission Date: 20170830
  Serious: No
  Sender: FDA-Public Use
  Company Number: US-ASTELLAS-2016US040133

PATIENT
  Age: 61 Year
  Sex: Female

DRUGS (1)
  1. LEXISCAN [Suspect]
     Active Substance: REGADENOSON
     Indication: SCAN MYOCARDIAL PERFUSION
     Dosage: 400 MCG/5ML, UNKNOWN FREQ.
     Route: 040
     Dates: start: 20161011, end: 20161011

REACTIONS (5)
  - Pain [Recovered/Resolved]
  - Extravasation [Unknown]
  - Burning sensation [Unknown]
  - Skin irritation [Unknown]
  - Flushing [Unknown]

NARRATIVE: CASE EVENT DATE: 20161011
